FAERS Safety Report 14632938 (Version 1)
Quarter: 2018Q1

REPORT INFORMATION
  Report Type: Spontaneous
  Country: US (occurrence: US)
  Receive Date: 20180313
  Receipt Date: 20180313
  Transmission Date: 20180509
  Serious: No
  Sender: FDA-Public Use
  Company Number: US-SUNOVION-2018SUN000896

PATIENT
  Sex: Female

DRUGS (3)
  1. LATUDA [Suspect]
     Active Substance: LURASIDONE HYDROCHLORIDE
     Dosage: 120 MG, UNK
     Route: 048
     Dates: start: 201712, end: 201802
  2. LATUDA [Suspect]
     Active Substance: LURASIDONE HYDROCHLORIDE
     Dosage: 60 MG, UNK
     Dates: start: 201802
  3. LATUDA [Suspect]
     Active Substance: LURASIDONE HYDROCHLORIDE
     Dosage: 80 MG, UNK
     Route: 048
     Dates: start: 2015, end: 201712

REACTIONS (8)
  - Skin discolouration [Unknown]
  - Paranoia [Unknown]
  - Eating disorder [Unknown]
  - Hypoaesthesia [Unknown]
  - Hyperphagia [Unknown]
  - Amnesia [Unknown]
  - Anxiety [Unknown]
  - Logorrhoea [Unknown]
